FAERS Safety Report 21464855 (Version 8)
Quarter: 2023Q2

REPORT INFORMATION
  Report Type: Spontaneous
  Country: US (occurrence: US)
  Receive Date: 20221017
  Receipt Date: 20230622
  Transmission Date: 20230722
  Serious: No
  Sender: FDA-Public Use
  Company Number: US-GLAXOSMITHKLINE-US2022AMR147421

PATIENT
  Sex: Female

DRUGS (1)
  1. ZEJULA [Suspect]
     Active Substance: NIRAPARIB
     Indication: Ovarian cancer
     Dosage: 200 MG, QD, IN MORNING

REACTIONS (11)
  - Nausea [Recovering/Resolving]
  - Initial insomnia [Not Recovered/Not Resolved]
  - Fatigue [Recovering/Resolving]
  - Hypertension [Unknown]
  - Myalgia [Unknown]
  - Myositis [Unknown]
  - Abdominal pain lower [Unknown]
  - Back pain [Unknown]
  - Fibromyalgia [Unknown]
  - Carbohydrate antigen 125 increased [Unknown]
  - Abdominal pain upper [Unknown]
